FAERS Safety Report 12182914 (Version 1)
Quarter: 2016Q1

REPORT INFORMATION
  Report Type: Spontaneous
  Country: US (occurrence: None)
  Receive Date: 20160315
  Receipt Date: 20160315
  Transmission Date: 20160526
  Serious: Yes (Life-Threatening)
  Sender: FDA-Public Use
  Company Number: None

PATIENT
  Age: 59 Year
  Sex: Female
  Weight: 81.65 kg

DRUGS (6)
  1. Z-PACK [Suspect]
     Active Substance: AZITHROMYCIN DIHYDRATE
     Indication: UPPER RESPIRATORY TRACT INFECTION
     Route: 048
     Dates: start: 20150115, end: 20150116
  2. COREG [Concomitant]
     Active Substance: CARVEDILOL
  3. LOSARTAN. [Concomitant]
     Active Substance: LOSARTAN
  4. MAGNESIUM [Concomitant]
     Active Substance: MAGNESIUM
  5. DAILY MVI [Concomitant]
  6. MAXZIDE [Concomitant]
     Active Substance: HYDROCHLOROTHIAZIDE\TRIAMTERENE

REACTIONS (5)
  - Deafness [None]
  - Chest pain [None]
  - Vertigo [None]
  - Tinnitus [None]
  - Arrhythmia [None]

NARRATIVE: CASE EVENT DATE: 20150115
